FAERS Safety Report 16437355 (Version 1)
Quarter: 2019Q2

REPORT INFORMATION
  Report Type: Spontaneous
  Country: NL (occurrence: NL)
  Receive Date: 20190615
  Receipt Date: 20190615
  Transmission Date: 20190711
  Serious: Yes (Other)
  Sender: FDA-Public Use
  Company Number: NL-AUROBINDO-AUR-APL-2019-033732

PATIENT

DRUGS (2)
  1. DERMOVATE [Concomitant]
     Active Substance: CLOBETASOL
     Indication: ECZEMA
     Dosage: UNK
     Route: 065
  2. METRONIDAZOLE 1% CREAM [Suspect]
     Active Substance: METRONIDAZOLE
     Indication: ROSACEA
     Dosage: 1 DOSAGE FORM, TWO TIMES A DAY (2 TIMES A DAY: IN THE MORNING AND IN THE AFTERNOON)
     Route: 003
     Dates: start: 20190502, end: 20190505

REACTIONS (7)
  - Facial paralysis [Not Recovered/Not Resolved]
  - Oral pain [Unknown]
  - Headache [Not Recovered/Not Resolved]
  - Lip swelling [Not Recovered/Not Resolved]
  - Mouth swelling [Not Recovered/Not Resolved]
  - Rash vesicular [Not Recovered/Not Resolved]
  - Rash pustular [Not Recovered/Not Resolved]

NARRATIVE: CASE EVENT DATE: 20190504
